FAERS Safety Report 9909615 (Version 2)
Quarter: 2014Q2

REPORT INFORMATION
  Report Type: Spontaneous
  Country: US (occurrence: US)
  Receive Date: 20140219
  Receipt Date: 20140415
  Transmission Date: 20141212
  Serious: Yes (Hospitalization)
  Sender: FDA-Public Use
  Company Number: US-GLAXOSMITHKLINE-A1060467A

PATIENT
  Age: 54 Year
  Sex: Female

DRUGS (9)
  1. LAMICTAL [Suspect]
     Indication: EPILEPSY
     Dosage: 525MG VARIABLE DOSE
     Route: 048
     Dates: start: 2001
  2. SYNTHROID [Concomitant]
  3. LIPITOR [Concomitant]
  4. NAPROXEN [Concomitant]
  5. TRAZODONE [Concomitant]
  6. BUPROPION [Concomitant]
  7. CLONAZEPAM [Concomitant]
  8. ALPRAZOLAM [Concomitant]
  9. MULTIVITAMINS [Concomitant]

REACTIONS (4)
  - Convulsion [Unknown]
  - Arterial spasm [Unknown]
  - Ventricular tachycardia [Unknown]
  - Shoulder operation [Unknown]
